FAERS Safety Report 19367416 (Version 1)
Quarter: 2021Q2

REPORT INFORMATION
  Report Type: Spontaneous
  Country: US (occurrence: US)
  Receive Date: 20210602
  Receipt Date: 20210602
  Transmission Date: 20210717
  Serious: No
  Sender: FDA-Public Use
  Company Number: US-ROCHE-2811101

PATIENT
  Age: 57 Year
  Sex: Female
  Weight: 77.18 kg

DRUGS (2)
  1. EVRYSDI [Suspect]
     Active Substance: RISDIPLAM
     Indication: SPINAL MUSCULAR ATROPHY
     Route: 048
     Dates: start: 20210328
  2. EVRYSDI [Suspect]
     Active Substance: RISDIPLAM

REACTIONS (4)
  - Diarrhoea [Recovered/Resolved]
  - Limb discomfort [Recovered/Resolved]
  - Fatigue [Recovering/Resolving]
  - Headache [Recovered/Resolved]

NARRATIVE: CASE EVENT DATE: 20210329
